FAERS Safety Report 6973240-5 (Version None)
Quarter: 2010Q3

REPORT INFORMATION
  Report Type: 
  Country: None (occurrence: None)
  Receive Date: 20100909
  Receipt Date: 20100902
  Transmission Date: 20110219
  Serious: Yes (Death)
  Sender: FDA-Public Use
  Company Number: CO-ROCHE-724927

PATIENT
  Sex: Male

DRUGS (1)
  1. XELODA [Suspect]
     Indication: COLORECTAL CANCER
     Dosage: FREUQENCY: EVERY DAY.
     Route: 048
     Dates: start: 20100619, end: 20100816

REACTIONS (1)
  - MALIGNANT NEOPLASM PROGRESSION [None]
